FAERS Safety Report 9674443 (Version 2)
Quarter: 2013Q4

REPORT INFORMATION
  Report Type: Report from Study
  Country: CA (occurrence: CA)
  Receive Date: 20131107
  Receipt Date: 20131206
  Transmission Date: 20140711
  Serious: Yes (Other)
  Sender: FDA-Public Use
  Company Number: CA-ROCHE-1299605

PATIENT
  Sex: Male

DRUGS (3)
  1. LUCENTIS [Suspect]
     Indication: DIABETIC RETINAL OEDEMA
     Dosage: LEFT EYE; LAST DOSE PRIOR TO SAE WAS ON 21/NOV/2013
     Route: 050
     Dates: start: 20120109
  2. AVASTIN [Concomitant]
  3. INSULIN [Concomitant]

REACTIONS (3)
  - Thrombosis [Unknown]
  - Limb discomfort [Recovering/Resolving]
  - Deep vein thrombosis [Recovering/Resolving]
